FAERS Safety Report 5367684-5 (Version None)
Quarter: 2007Q2

REPORT INFORMATION
  Report Type: 
  Country: None (occurrence: None)
  Receive Date: 20070622
  Receipt Date: 20070122
  Transmission Date: 20071010
  Serious: No
  Sender: FDA-Public Use
  Company Number: US-ASTRAZENECA-2007UW01315

PATIENT
  Age: 2 Year
  Sex: Male
  Weight: 14.5 kg

DRUGS (3)
  1. PULMICORT RESPULES [Suspect]
     Dosage: .5MG/2ML
     Route: 055
     Dates: start: 20070118
  2. SINGULAIR [Concomitant]
  3. XOPENEX [Concomitant]

REACTIONS (2)
  - GASTROENTERITIS VIRAL [None]
  - IRRITABILITY [None]
